FAERS Safety Report 8426539-X (Version None)
Quarter: 2012Q2

REPORT INFORMATION
  Report Type: 
  Country: None (occurrence: None)
  Receive Date: 20120611
  Receipt Date: 20120605
  Transmission Date: 20120825
  Serious: Yes (Other)
  Sender: FDA-Public Use
  Company Number: US-PFIZER INC-2012135377

PATIENT
  Sex: Female
  Weight: 47.3 kg

DRUGS (1)
  1. PRISTIQ [Suspect]
     Indication: POSTPARTUM DEPRESSION
     Dosage: UNK
     Dates: start: 20120501

REACTIONS (2)
  - BRADYCARDIA [None]
  - FATIGUE [None]
